FAERS Safety Report 11810090 (Version 2)
Quarter: 2016Q1

REPORT INFORMATION
  Report Type: Spontaneous
  Country: JP (occurrence: JP)
  Receive Date: 20151208
  Receipt Date: 20160210
  Transmission Date: 20160525
  Serious: Yes (Death, Other)
  Sender: FDA-Public Use
  Company Number: JP-ACTAVIS-2015-26887

PATIENT
  Age: 55 Year
  Sex: Male

DRUGS (5)
  1. CISPLATIN (UNKNOWN) [Suspect]
     Active Substance: CISPLATIN
     Dosage: 60 MG/M2, CYCLICAL
     Route: 065
  2. CISPLATIN (UNKNOWN) [Suspect]
     Active Substance: CISPLATIN
     Indication: NASOPHARYNGEAL CANCER
     Dosage: 20 MG/M2, CYCLICAL, 6 CYCLES
     Route: 065
  3. FLUOROURACIL. [Suspect]
     Active Substance: FLUOROURACIL
     Indication: NASOPHARYNGEAL CANCER
     Dosage: 600 MG/M2, DAILY
     Route: 065
  4. DOCETAXEL (UNKNOWN) [Suspect]
     Active Substance: DOCETAXEL
     Dosage: 60 MG/M2, CYCLICAL
     Route: 065
  5. DOCETAXEL (UNKNOWN) [Suspect]
     Active Substance: DOCETAXEL
     Indication: NASOPHARYNGEAL CANCER
     Dosage: 10 MG/M2, CYCLICAL, 6 CYLCES
     Route: 065

REACTIONS (7)
  - Enteritis [Not Recovered/Not Resolved]
  - Stomatitis [Unknown]
  - Pneumonia staphylococcal [Not Recovered/Not Resolved]
  - Shock [Not Recovered/Not Resolved]
  - Acute respiratory distress syndrome [Fatal]
  - Febrile neutropenia [Not Recovered/Not Resolved]
  - Sepsis [Not Recovered/Not Resolved]
